FAERS Safety Report 11737756 (Version 2)
Quarter: 2015Q4

REPORT INFORMATION
  Report Type: Report from Study
  Country: US (occurrence: US)
  Receive Date: 20151113
  Receipt Date: 20151120
  Transmission Date: 20160304
  Serious: Yes (Other)
  Sender: FDA-Public Use
  Company Number: US-AMGEN-USACT2015117036

PATIENT
  Age: 63 Year
  Sex: Male

DRUGS (8)
  1. VYTORIN [Concomitant]
     Active Substance: EZETIMIBE\SIMVASTATIN
     Dosage: UNK UNK, QD
     Route: 048
     Dates: start: 2008
  2. AMG 145 [Suspect]
     Active Substance: EVOLOCUMAB
     Indication: HYPERLIPIDAEMIA
     Dosage: UNK
     Route: 065
     Dates: start: 20130918
  3. PREFILLED AUTOINJECTOR/PEN [Suspect]
     Active Substance: DEVICE
     Indication: DYSLIPIDAEMIA
  4. COZAAR [Concomitant]
     Active Substance: LOSARTAN POTASSIUM
     Dosage: 50 MG, QD
     Route: 048
     Dates: start: 2003
  5. VITAMIN D3 [Concomitant]
     Active Substance: CHOLECALCIFEROL
     Dosage: 100 MG, QD
     Route: 048
     Dates: start: 2010
  6. PROTONIX                           /00661201/ [Concomitant]
     Active Substance: OMEPRAZOLE
     Dosage: 40 MG, QD
     Route: 048
     Dates: start: 2008
  7. AMG 145 [Suspect]
     Active Substance: EVOLOCUMAB
     Indication: DYSLIPIDAEMIA
  8. PREFILLED AUTOINJECTOR/PEN [Suspect]
     Active Substance: DEVICE
     Indication: HYPERLIPIDAEMIA
     Dosage: UNK
     Route: 065
     Dates: start: 20130918

REACTIONS (1)
  - Squamous cell carcinoma [Not Recovered/Not Resolved]

NARRATIVE: CASE EVENT DATE: 20151030
